FAERS Safety Report 6506415-X (Version None)
Quarter: 2009Q4

REPORT INFORMATION
  Report Type: 
  Country: None (occurrence: None)
  Receive Date: 20091220
  Receipt Date: 20091208
  Transmission Date: 20100525
  Serious: Yes (Death)
  Sender: FDA-Public Use
  Company Number: JP-BRISTOL-MYERS SQUIBB COMPANY-14897532

PATIENT
  Age: 58 Year
  Sex: Male

DRUGS (8)
  1. ABILIFY [Suspect]
     Dosage: 11AUG09-17AUG09:12MG(7D) 18AUG-15SEP:24MG(29D) 16SEP-20OCT09:30MG(35D)
     Route: 048
     Dates: start: 20090811, end: 20091020
  2. LEXIN [Concomitant]
     Dosage: TABLET
  3. AKINETON [Concomitant]
     Dosage: TABLET
  4. TETRAMIDE [Concomitant]
     Dosage: TABLET
  5. LEVOTOMIN [Concomitant]
     Dosage: TABLET
  6. ALLEGRA [Concomitant]
     Dosage: TABLET
  7. MAGMITT [Concomitant]
     Dosage: TABLET
  8. LUVOX [Concomitant]
     Dosage: TABLET

REACTIONS (2)
  - HEADACHE [None]
  - HYPERTENSION [None]
